FAERS Safety Report 9993249 (Version 1)
Quarter: 2014Q1

REPORT INFORMATION
  Report Type: Report from Study
  Country: US (occurrence: US)
  Receive Date: 20140310
  Receipt Date: 20140310
  Transmission Date: 20141002
  Serious: No
  Sender: FDA-Public Use
  Company Number: US-ABBVIE-14P-163-1200759-00

PATIENT
  Age: 43 Year
  Sex: Female
  Weight: 54.93 kg

DRUGS (3)
  1. LUPRON DEPOT [Suspect]
     Indication: UTERINE LEIOMYOMA
     Dates: start: 20140121, end: 20140121
  2. CORVITE [Concomitant]
     Indication: MINERAL SUPPLEMENTATION
  3. LISINOPRIL [Concomitant]
     Indication: HYPERTENSION

REACTIONS (1)
  - Hot flush [Recovered/Resolved]
